FAERS Safety Report 10409890 (Version 1)
Quarter: 2014Q3

REPORT INFORMATION
  Report Type: Spontaneous
  Country: US (occurrence: US)
  Receive Date: 20140826
  Receipt Date: 20140826
  Transmission Date: 20150326
  Serious: Yes (Hospitalization)
  Sender: FDA-Public Use
  Company Number: US-B.I. PHARMACEUTICALS,INC./RIDGEFIELD-2014-BI-38650BP

PATIENT
  Age: 82 Year
  Sex: Female

DRUGS (16)
  1. NEXIUM [Concomitant]
     Active Substance: ESOMEPRAZOLE MAGNESIUM
     Dosage: 40 MG
     Route: 065
  2. KLOR-CON [Concomitant]
     Active Substance: POTASSIUM CHLORIDE
     Dosage: 10 MEQ
     Route: 065
  3. GEMFIBROZIL. [Concomitant]
     Active Substance: GEMFIBROZIL
     Dosage: 1200 MG
     Route: 065
  4. HUMULIN NOS [Concomitant]
     Active Substance: INSULIN HUMAN
     Dosage: DOSE PER APPLICATION + DAILY DOSE: 70/30
     Route: 065
  5. LASIX [Concomitant]
     Active Substance: FUROSEMIDE
     Dosage: 40 MG
     Route: 065
  6. TERAZOSIN [Concomitant]
     Active Substance: TERAZOSIN\TERAZOSIN HYDROCHLORIDE
     Dosage: 10 MG
     Route: 065
  7. NITROGLYCERIN. [Concomitant]
     Active Substance: NITROGLYCERIN
     Route: 065
  8. MULTAQ [Concomitant]
     Active Substance: DRONEDARONE
     Dosage: 800 MG
     Route: 065
  9. DETROL LA [Concomitant]
     Active Substance: TOLTERODINE TARTRATE
     Dosage: 4 MG
     Route: 065
  10. IRON [Concomitant]
     Active Substance: IRON
     Dosage: 975 MG
     Route: 065
  11. ASPIRIN. [Concomitant]
     Active Substance: ASPIRIN
     Dosage: 81 MG
     Route: 065
  12. LIPITOR [Concomitant]
     Active Substance: ATORVASTATIN CALCIUM
     Dosage: 40 MG
     Route: 065
  13. VITAMIN C [Concomitant]
     Active Substance: ASCORBIC ACID
     Route: 065
  14. FUROSEMIDE. [Concomitant]
     Active Substance: FUROSEMIDE
     Dosage: 20 MG
     Route: 065
  15. PRADAXA [Suspect]
     Active Substance: DABIGATRAN ETEXILATE MESYLATE
     Indication: ATRIAL FIBRILLATION
     Dosage: 300 MG
     Route: 065
     Dates: start: 20110127, end: 20110217
  16. COREG [Concomitant]
     Active Substance: CARVEDILOL
     Dosage: 20 MG
     Route: 065

REACTIONS (4)
  - Renal failure [Unknown]
  - Coagulopathy [Unknown]
  - Anaemia [Unknown]
  - Gastrointestinal haemorrhage [Recovered/Resolved]

NARRATIVE: CASE EVENT DATE: 201102
